FAERS Safety Report 5499712-0 (Version None)
Quarter: 2007Q4

REPORT INFORMATION
  Report Type: 
  Country: None (occurrence: None)
  Receive Date: 20071026
  Receipt Date: 20071015
  Transmission Date: 20080405
  Serious: Yes (Hospitalization)
  Sender: FDA-Public Use
  Company Number: US-PFIZER INC-2007044044

PATIENT
  Sex: Female
  Weight: 106.6 kg

DRUGS (1)
  1. CELEBREX [Suspect]

REACTIONS (4)
  - CHEST PAIN [None]
  - HYPOAESTHESIA [None]
  - LUNG DISORDER [None]
  - PAIN IN EXTREMITY [None]
